FAERS Safety Report 8457814-0 (Version None)
Quarter: 2012Q2

REPORT INFORMATION
  Report Type: 
  Country: None (occurrence: None)
  Receive Date: 20120622
  Receipt Date: 20120612
  Transmission Date: 20120825
  Serious: Yes (Hospitalization)
  Sender: FDA-Public Use
  Company Number: US-BAYER-2012-014328

PATIENT
  Age: 38 Year
  Sex: Female
  Weight: 144.22 kg

DRUGS (18)
  1. YAZ [Suspect]
     Dosage: UNK
     Dates: start: 20000101, end: 20100101
  2. TRAZODONE HCL [Concomitant]
     Dosage: 100 MG, HS
     Route: 048
     Dates: start: 20100216
  3. ADVAIR DISKUS 100/50 [Concomitant]
     Dosage: 250-500 1 INHALATION, BID
     Dates: start: 20100216
  4. OXCARBAZEPINE [Concomitant]
     Indication: BIPOLAR DISORDER
  5. COMBIVENT [Concomitant]
     Dosage: 2 PUFF(S), QID, PRN
     Dates: start: 20100216
  6. LOVASTATIN [Concomitant]
     Dosage: 20 MG, HS
     Route: 048
     Dates: start: 20100216
  7. CITALOPRAM HYDROBROMIDE [Concomitant]
     Indication: BIPOLAR DISORDER
  8. VITAMIN D [Concomitant]
  9. DROSPIRENONE AND ETHINYL ESTRADIOL [Suspect]
     Dosage: UNK
     Dates: start: 20090601, end: 20100101
  10. GEODON [Concomitant]
     Indication: BIPOLAR DISORDER
     Dosage: 20 MG, HS
     Route: 048
     Dates: start: 20100216
  11. GABAPENTIN [Concomitant]
     Indication: BIPOLAR DISORDER
  12. CELEXA [Concomitant]
     Dosage: 20 MG, DAILY
     Route: 048
     Dates: start: 20100216
  13. BENZOATE [Concomitant]
     Dosage: UNK
     Dates: start: 20100216
  14. NIACIN [Concomitant]
     Dosage: 1000 MG, HS
     Dates: start: 20100216
  15. MULTI-VITAMIN [Concomitant]
  16. YASMIN [Suspect]
     Dosage: UNK
     Dates: start: 20000101, end: 20100101
  17. BENZTROPINE MESYLATE [Concomitant]
     Indication: BIPOLAR DISORDER
     Dosage: UNK
  18. DROSPIRENONE AND ETHINYL ESTRADIOL [Suspect]
     Dosage: UNK
     Dates: start: 20090501, end: 20100101

REACTIONS (4)
  - PAIN [None]
  - FEAR OF DISEASE [None]
  - THROMBOSIS [None]
  - DEEP VEIN THROMBOSIS [None]
